FAERS Safety Report 8535445-1 (Version None)
Quarter: 2012Q3

REPORT INFORMATION
  Report Type: 
  Country: None (occurrence: None)
  Receive Date: 20120725
  Receipt Date: 20120713
  Transmission Date: 20120928
  Serious: Yes (Hospitalization)
  Sender: FDA-Public Use
  Company Number: DE-BRISTOL-MYERS SQUIBB COMPANY-16784183

PATIENT
  Age: 72 Year
  Sex: Male
  Weight: 56 kg

DRUGS (2)
  1. ERBITUX [Suspect]
     Indication: COLORECTAL CANCER METASTATIC
     Dosage: 18JAN12-18JAN12,26JAN12-08FEB12:250MG/M2,1IN 1 WK(13DYS).LAST INF:08FEB12.
     Route: 042
     Dates: start: 20120118, end: 20120208
  2. CORTICOSTEROID [Concomitant]
     Indication: PREMEDICATION

REACTIONS (3)
  - GENERAL PHYSICAL HEALTH DETERIORATION [None]
  - ACUTE PRERENAL FAILURE [None]
  - DEHYDRATION [None]
